FAERS Safety Report 21328456 (Version 2)
Quarter: 2022Q3

REPORT INFORMATION
  Report Type: Other
  Country: JP (occurrence: None)
  Receive Date: 20220913
  Receipt Date: 20220916
  Transmission Date: 20221027
  Serious: Yes (Death, Other)
  Sender: FDA-Public Use
  Company Number: JP-CHUGAI-A2020052578ROCHE

PATIENT
  Age: 70 Year
  Sex: Female
  Weight: 55 kg

DRUGS (26)
  1. OBINUTUZUMAB [Suspect]
     Active Substance: OBINUTUZUMAB
     Indication: Follicular lymphoma
     Dosage: MOST RECENT DOSE ; 09/MAY/2019
     Route: 041
     Dates: start: 20190509, end: 20190509
  2. OBINUTUZUMAB [Suspect]
     Active Substance: OBINUTUZUMAB
     Dosage: MOST RECENT DOSE: 13/JUN/2019
     Route: 041
     Dates: start: 20190613, end: 20190613
  3. OBINUTUZUMAB [Suspect]
     Active Substance: OBINUTUZUMAB
     Dosage: MOST RECENT DOSE 12/JUL/2019
     Route: 041
     Dates: start: 20190712, end: 20190712
  4. OBINUTUZUMAB [Suspect]
     Active Substance: OBINUTUZUMAB
     Dosage: OST RECENT DOSE: 23/AUG/2019
     Route: 041
     Dates: start: 20190823, end: 20190823
  5. OBINUTUZUMAB [Suspect]
     Active Substance: OBINUTUZUMAB
     Dosage: MOST RECENT DOSE: 20/SEP/2019
     Route: 041
     Dates: start: 20190920, end: 20190920
  6. OBINUTUZUMAB [Suspect]
     Active Substance: OBINUTUZUMAB
     Dosage: MOST RECENT DOSE: 25/OCT/2019
     Route: 041
     Dates: start: 20191025, end: 20191025
  7. OBINUTUZUMAB [Suspect]
     Active Substance: OBINUTUZUMAB
     Dosage: MOST RECENT DOSE: 16/MAY/2019
     Route: 041
     Dates: start: 20190516, end: 20190516
  8. OBINUTUZUMAB [Suspect]
     Active Substance: OBINUTUZUMAB
     Dosage: MOST RECENT DOSE: 27/MAY/2019
     Route: 041
     Dates: start: 20190527, end: 20190527
  9. OBINUTUZUMAB [Suspect]
     Active Substance: OBINUTUZUMAB
     Dosage: MOST RECENT DOSE 27/JAN/2020
     Route: 041
     Dates: start: 20200127, end: 20200127
  10. OBINUTUZUMAB [Suspect]
     Active Substance: OBINUTUZUMAB
     Dosage: MOST RECENT DOSE 23/MAR/2020
     Route: 041
     Dates: start: 20200323, end: 20200323
  11. OBINUTUZUMAB [Suspect]
     Active Substance: OBINUTUZUMAB
     Dosage: MOST RECENT DOSE: 18/MAY/2020
     Route: 041
     Dates: start: 20200518, end: 20200518
  12. OBINUTUZUMAB [Suspect]
     Active Substance: OBINUTUZUMAB
     Dosage: ST RECENT DOSE: 13/JUL/2020
     Route: 041
     Dates: start: 20200713, end: 20200713
  13. OBINUTUZUMAB [Suspect]
     Active Substance: OBINUTUZUMAB
     Dosage: MOST RECENT DOSE; 07/09/2020
     Route: 041
     Dates: start: 20200907, end: 20200907
  14. OBINUTUZUMAB [Suspect]
     Active Substance: OBINUTUZUMAB
     Dosage: MOST RECENT DOSE: 09/NOV/2020
     Route: 041
     Dates: start: 20201109, end: 20201109
  15. OBINUTUZUMAB [Suspect]
     Active Substance: OBINUTUZUMAB
     Dosage: MOST RECENT DOSE: 04/JAN/2021
     Route: 041
     Dates: start: 20210104, end: 20210104
  16. OBINUTUZUMAB [Suspect]
     Active Substance: OBINUTUZUMAB
     Dosage: MOST RECENT DOSE: 01/MAR/2021
     Route: 041
     Dates: start: 20210301, end: 20210301
  17. OBINUTUZUMAB [Suspect]
     Active Substance: OBINUTUZUMAB
     Dosage: MOST RECENT DOSE: 26/APR/2021
     Route: 041
     Dates: start: 20210426, end: 20210426
  18. OBINUTUZUMAB [Suspect]
     Active Substance: OBINUTUZUMAB
     Dosage: MOST RECENT DOSE: 21/JUN/2021
     Route: 041
     Dates: start: 20210621, end: 20210621
  19. OBINUTUZUMAB [Suspect]
     Active Substance: OBINUTUZUMAB
     Dosage: MOST RECENT DOSE: 16/AUG/2021
     Route: 041
     Dates: start: 20210816, end: 20210816
  20. OBINUTUZUMAB [Suspect]
     Active Substance: OBINUTUZUMAB
     Dosage: MOST RECENT DOSE: 11/OCT/1021
     Route: 041
     Dates: start: 20211011, end: 20211011
  21. BENDAMUSTINE HYDROCHLORIDE [Suspect]
     Active Substance: BENDAMUSTINE HYDROCHLORIDE
     Indication: Follicular lymphoma
     Route: 042
     Dates: start: 20190509, end: 20191026
  22. BENDAMUSTINE HYDROCHLORIDE [Suspect]
     Active Substance: BENDAMUSTINE HYDROCHLORIDE
     Route: 042
     Dates: start: 20190516, end: 20191026
  23. RITUXAN [Suspect]
     Active Substance: RITUXIMAB
     Indication: Follicular lymphoma
     Route: 041
  24. CYCLOPHOSPHAMIDE [Concomitant]
     Active Substance: CYCLOPHOSPHAMIDE
     Indication: Follicular lymphoma
     Route: 042
  25. VINCRISTINE SULFATE [Concomitant]
     Active Substance: VINCRISTINE SULFATE
     Indication: Follicular lymphoma
     Route: 042
  26. PREDNISOLONE [Concomitant]
     Active Substance: PREDNISOLONE
     Indication: Follicular lymphoma
     Route: 048

REACTIONS (2)
  - COVID-19 pneumonia [Fatal]
  - Neutropenia [Recovered/Resolved]

NARRATIVE: CASE EVENT DATE: 20220518
